FAERS Safety Report 5262922-1 (Version None)
Quarter: 2007Q1

REPORT INFORMATION
  Report Type: 
  Country: None (occurrence: None)
  Receive Date: 20070312
  Receipt Date: 20070308
  Transmission Date: 20070707
  Serious: Yes (Hospitalization)
  Sender: FDA-Public Use
  Company Number: US-BRISTOL-MYERS SQUIBB COMPANY-13380969

PATIENT
  Age: 76 Year
  Sex: Female

DRUGS (26)
  1. CETUXIMAB [Suspect]
     Indication: NON-SMALL CELL LUNG CANCER
     Dosage: THERAPY START DATE 19-APR-06. DELAYED/OMITTED.
     Route: 042
     Dates: start: 20060509, end: 20060509
  2. CARBOPLATIN [Suspect]
     Indication: NON-SMALL CELL LUNG CANCER
     Dosage: THERAPY START DATE 19-APR-06.
     Route: 042
     Dates: start: 20060509, end: 20060509
  3. TAXOTERE [Suspect]
     Indication: NON-SMALL CELL LUNG CANCER
     Dosage: THERAPY START DATE 19-APR-2006.
     Route: 042
     Dates: start: 20060509, end: 20060509
  4. VERAPAMIL [Concomitant]
     Dates: start: 19830101, end: 20060425
  5. LANOXIN [Concomitant]
     Dates: start: 19960101
  6. QUESTRAN [Concomitant]
     Dates: start: 19710101
  7. FOLIC ACID [Concomitant]
     Dates: start: 19660101
  8. BENICAR [Concomitant]
     Dates: start: 20050101, end: 20060425
  9. LOMOTIL [Concomitant]
     Dates: start: 19700101
  10. DIAZEPAM [Concomitant]
     Dates: start: 19760101
  11. M.V.I. [Concomitant]
     Dates: start: 19460101
  12. ASCORBIC ACID [Concomitant]
     Dates: start: 19460101
  13. VITAMIN B6 [Concomitant]
     Dates: start: 20050101
  14. ASPIRIN [Concomitant]
     Dates: start: 19960101
  15. B12 [Concomitant]
     Dates: start: 19700101
  16. ZOLOFT [Concomitant]
     Dates: start: 20050101
  17. CALCIUM [Concomitant]
     Dates: start: 19810101
  18. QUININE [Concomitant]
     Dates: start: 20060101
  19. TYLENOL [Concomitant]
     Indication: PAIN
     Dates: start: 20060418
  20. ZOFRAN [Concomitant]
     Indication: PROPHYLAXIS
     Dates: start: 20060419
  21. DECADRON [Concomitant]
     Indication: PROPHYLAXIS
     Dates: start: 20060419
  22. BENADRYL [Concomitant]
     Indication: PROPHYLAXIS
     Dates: start: 20060419
  23. HYDRATION [Concomitant]
     Indication: HYPOTENSION
     Dates: start: 20060425
  24. AREDIA [Concomitant]
     Indication: METASTASES TO BONE
     Dates: start: 20060425
  25. ARANESP [Concomitant]
     Indication: CHEMOTHERAPY
     Dates: start: 20060502
  26. COMPAZINE [Concomitant]
     Indication: NAUSEA
     Dates: start: 20060419

REACTIONS (1)
  - ILEUS [None]
